FAERS Safety Report 4642631-X (Version None)
Quarter: 2005Q2

REPORT INFORMATION
  Report Type: 
  Country: None (occurrence: None)
  Receive Date: 20050422
  Receipt Date: 20050415
  Transmission Date: 20051028
  Serious: Yes (Other)
  Sender: FDA-Public Use
  Company Number: PHBS2005BR05336

PATIENT
  Age: 42 Year
  Sex: Male

DRUGS (2)
  1. TEGRETOL [Suspect]
     Indication: ANXIETY
     Dosage: 400 MG, BID
     Route: 048
     Dates: start: 20030101
  2. RISPERDAL [Concomitant]
     Indication: ANXIETY
     Dosage: 3 MG, QD
     Route: 048

REACTIONS (6)
  - FEAR [None]
  - HALLUCINATION [None]
  - HYPERHIDROSIS [None]
  - PALPITATIONS [None]
  - PANIC DISORDER [None]
  - PETIT MAL EPILEPSY [None]
